FAERS Safety Report 10733839 (Version 1)
Quarter: 2015Q1

REPORT INFORMATION
  Report Type: Spontaneous
  Country: US (occurrence: US)
  Receive Date: 20150123
  Receipt Date: 20150123
  Transmission Date: 20150721
  Serious: No
  Sender: FDA-Public Use
  Company Number: US-BRACCO-010378

PATIENT
  Sex: Female

DRUGS (1)
  1. RUBIDIUM [Suspect]
     Active Substance: RUBIDIUM CHLORIDE RB-82
     Indication: POSITRON EMISSION TOMOGRAM
     Dosage: PATIENT RECEIVED ABOUT 28 MCI OF THE INTENDED 50 MCI.
     Dates: start: 20131211, end: 20131211

REACTIONS (1)
  - Incorrect dose administered [Unknown]

NARRATIVE: CASE EVENT DATE: 20131211
